FAERS Safety Report 5253284-4 (Version None)
Quarter: 2007Q1

REPORT INFORMATION
  Report Type: 
  Country: None (occurrence: None)
  Receive Date: 20070301
  Receipt Date: 20070226
  Transmission Date: 20070707
  Serious: Yes (Hospitalization)
  Sender: FDA-Public Use
  Company Number: US-JNJFOC-20070206538

PATIENT
  Age: 27 Year
  Sex: Female

DRUGS (1)
  1. ORTHO TRI-CYCLEN LO [Suspect]
     Indication: CONTRACEPTION
     Route: 048
     Dates: start: 20070201

REACTIONS (4)
  - BRAIN OEDEMA [None]
  - HEADACHE [None]
  - PAPILLOEDEMA [None]
  - RETINAL VASCULAR THROMBOSIS [None]
